FAERS Safety Report 8442979-7 (Version None)
Quarter: 2012Q2

REPORT INFORMATION
  Report Type: 
  Country: None (occurrence: None)
  Receive Date: 20120615
  Receipt Date: 20120608
  Transmission Date: 20120825
  Serious: Yes (Hospitalization)
  Sender: FDA-Public Use
  Company Number: FR-TEVA-342450USA

PATIENT
  Sex: Male
  Weight: 180 kg

DRUGS (16)
  1. TREANDA [Suspect]
     Route: 041
     Dates: start: 20120525
  2. DEXAMETHASONE [Suspect]
     Indication: MANTLE CELL LYMPHOMA
     Route: 041
     Dates: start: 20120302
  3. TREANDA [Suspect]
     Indication: MANTLE CELL LYMPHOMA
     Route: 041
     Dates: start: 20120302
  4. TREANDA [Suspect]
     Dosage: UID/QD
     Route: 041
     Dates: start: 20120427, end: 20120428
  5. BORTEZOMIB [Suspect]
     Indication: MANTLE CELL LYMPHOMA
     Route: 058
     Dates: start: 20120302
  6. BORTEZOMIB [Suspect]
     Route: 058
     Dates: start: 20120427, end: 20120504
  7. BORTEZOMIB [Suspect]
     Route: 058
     Dates: start: 20120525
  8. RITUXIMAB [Suspect]
     Dosage: UID/QD
     Route: 041
     Dates: start: 20120427, end: 20120427
  9. BORTEZOMIB [Suspect]
     Route: 058
     Dates: start: 20120330
  10. DEXAMETHASONE [Suspect]
     Dosage: UID/QD
     Route: 041
     Dates: start: 20120428, end: 20120428
  11. RITUXIMAB [Suspect]
     Route: 041
     Dates: start: 20120330
  12. RITUXIMAB [Suspect]
     Route: 041
     Dates: start: 20120525
  13. TREANDA [Suspect]
     Route: 041
     Dates: start: 20120330
  14. RITUXIMAB [Suspect]
     Indication: MANTLE CELL LYMPHOMA
     Route: 041
     Dates: start: 20120502
  15. DEXAMETHASONE [Suspect]
     Route: 041
     Dates: start: 20120525
  16. DEXAMETHASONE [Suspect]
     Route: 041
     Dates: start: 20120330

REACTIONS (2)
  - ORAL CANDIDIASIS [None]
  - NAUSEA [None]
